FAERS Safety Report 6867730-3 (Version None)
Quarter: 2010Q3

REPORT INFORMATION
  Report Type: 
  Country: None (occurrence: None)
  Receive Date: 20100721
  Receipt Date: 20100721
  Transmission Date: 20110219
  Serious: No
  Sender: FDA-Public Use
  Company Number: None

PATIENT
  Age: 41 Year
  Sex: Female

DRUGS (5)
  1. LAMICTAL [Suspect]
     Indication: BIPOLAR DISORDER
     Dosage: 150 MG
     Dates: start: 20090601, end: 20090801
  2. BUSPOR [Concomitant]
  3. ABILIFY [Concomitant]
  4. THAZODONE [Concomitant]
  5. KLONOPIN [Concomitant]

REACTIONS (1)
  - PRODUCT SUBSTITUTION ISSUE [None]
